FAERS Safety Report 24756508 (Version 1)
Quarter: 2024Q4

REPORT INFORMATION
  Report Type: Spontaneous
  Country: US (occurrence: US)
  Receive Date: 20241220
  Receipt Date: 20241220
  Transmission Date: 20250114
  Serious: Yes (Other)
  Sender: TEVA
  Company Number: US-TEVA-VS-3274946

PATIENT
  Age: 47 Year
  Sex: Male

DRUGS (1)
  1. AUSTEDO [Suspect]
     Active Substance: DEUTETRABENAZINE
     Indication: Tardive dyskinesia
     Route: 065

REACTIONS (3)
  - Thrombosis [Unknown]
  - Depression [Unknown]
  - COVID-19 [Unknown]

NARRATIVE: CASE EVENT DATE: 20241211
